FAERS Safety Report 13359693 (Version 1)
Quarter: 2017Q1

REPORT INFORMATION
  Report Type: Report from Study
  Country: US (occurrence: US)
  Receive Date: 20170322
  Receipt Date: 20170322
  Transmission Date: 20170429
  Serious: No
  Sender: FDA-Public Use
  Company Number: PHEH2017US007948

PATIENT
  Sex: Female
  Weight: 75.4 kg

DRUGS (1)
  1. MYCOPHENOLATE [Suspect]
     Active Substance: MYCOPHENOLIC ACID
     Indication: PROPHYLAXIS AGAINST TRANSPLANT REJECTION
     Dosage: 720 MG, BID
     Route: 048
     Dates: start: 2016, end: 2016

REACTIONS (1)
  - Nausea [Recovered/Resolved]

NARRATIVE: CASE EVENT DATE: 2016
